FAERS Safety Report 6538498-5 (Version None)
Quarter: 2010Q1

REPORT INFORMATION
  Report Type: 
  Country: None (occurrence: None)
  Receive Date: 20100114
  Receipt Date: 20100111
  Transmission Date: 20100710
  Serious: Yes (Hospitalization)
  Sender: FDA-Public Use
  Company Number: FR-MERCK-1001FRA00016

PATIENT
  Age: 59 Year
  Sex: Female

DRUGS (9)
  1. INVANZ [Suspect]
     Indication: URINARY TRACT INFECTION
     Route: 042
     Dates: start: 20090923, end: 20090926
  2. PRIMAXIN [Suspect]
     Indication: URINARY TRACT INFECTION
     Route: 042
     Dates: start: 20090916, end: 20090923
  3. PRIMAXIN [Suspect]
     Route: 042
     Dates: start: 20090928, end: 20091005
  4. VALPROATE SODIUM [Suspect]
     Indication: EPILEPSY
     Route: 048
     Dates: end: 20090926
  5. VALPROATE SODIUM [Suspect]
     Dosage: DAILY DOSE WAS INCREASED
     Route: 048
     Dates: start: 20091005
  6. VALPROATE SODIUM [Suspect]
     Dosage: DAILY DOSE WAS REDUCED
     Route: 048
     Dates: start: 20090926, end: 20090928
  7. LEVETIRACETAM [Concomitant]
     Indication: EPILEPSY
     Route: 065
  8. VALPROATE SODIUM [Suspect]
     Route: 042
     Dates: start: 20090928, end: 20091001
  9. VALPROATE SODIUM [Suspect]
     Route: 042
     Dates: start: 20091002, end: 20091005

REACTIONS (2)
  - DRUG LEVEL BELOW THERAPEUTIC [None]
  - GRAND MAL CONVULSION [None]
